FAERS Safety Report 18935962 (Version 2)
Quarter: 2021Q1

REPORT INFORMATION
  Report Type: Spontaneous
  Country: DE (occurrence: DE)
  Receive Date: 20210224
  Receipt Date: 20210310
  Transmission Date: 20210420
  Serious: Yes (Hospitalization, Other)
  Sender: FDA-Public Use
  Company Number: DE-SA-2021SA062126

PATIENT
  Age: 44 Year
  Sex: Male

DRUGS (4)
  1. DUPILUMAB [Suspect]
     Active Substance: DUPILUMAB
     Indication: DERMATITIS ATOPIC
     Dosage: 300 MG, QOW
     Route: 058
     Dates: start: 20200303, end: 20200903
  2. TOCTINO [Concomitant]
     Active Substance: ALITRETINOIN
     Dosage: 10 MG
     Route: 048
     Dates: start: 201910, end: 202001
  3. TOCTINO [Concomitant]
     Active Substance: ALITRETINOIN
     Indication: DERMATITIS ATOPIC
     Dosage: 30 MG
     Route: 048
     Dates: start: 2013, end: 201910
  4. CICLOSPORIN [Concomitant]
     Active Substance: CYCLOSPORINE
     Indication: DERMATITIS ATOPIC
     Dosage: UNK
     Route: 048
     Dates: start: 1998, end: 2003

REACTIONS (1)
  - Cutaneous T-cell lymphoma [Not Recovered/Not Resolved]

NARRATIVE: CASE EVENT DATE: 20200929
